FAERS Safety Report 14351148 (Version 1)
Quarter: 2018Q1

REPORT INFORMATION
  Report Type: Spontaneous
  Country: US (occurrence: US)
  Receive Date: 20180104
  Receipt Date: 20180104
  Transmission Date: 20180509
  Serious: Yes (Death)
  Sender: FDA-Public Use
  Company Number: US-PFIZER INC-2018002500

PATIENT
  Age: 2 Year
  Sex: Female

DRUGS (1)
  1. ERYTHROMYCIN. [Suspect]
     Active Substance: ERYTHROMYCIN
     Indication: SCARLET FEVER
     Dosage: 500 MG, UNK
     Route: 030

REACTIONS (2)
  - Anaphylactic shock [Fatal]
  - Seizure [Fatal]
